FAERS Safety Report 24016457 (Version 1)
Quarter: 2024Q2

REPORT INFORMATION
  Report Type: Spontaneous
  Country: AU (occurrence: AU)
  Receive Date: 20240626
  Receipt Date: 20240626
  Transmission Date: 20240716
  Serious: Yes (Hospitalization)
  Sender: FDA-Public Use
  Company Number: None

PATIENT
  Age: 66 Year
  Sex: Female

DRUGS (10)
  1. MIRTAZAPINE [Suspect]
     Active Substance: MIRTAZAPINE
     Indication: Product used for unknown indication
     Dosage: 15 MG X 0.5 A TABLET
     Route: 065
  2. MIRTAZAPINE [Suspect]
     Active Substance: MIRTAZAPINE
     Dosage: REDUCED TO 15 MG
     Route: 065
     Dates: start: 20200513, end: 20200529
  3. MIRTAZAPINE [Suspect]
     Active Substance: MIRTAZAPINE
     Dosage: REDUCED MIRTAZAPINE TO 30 MG ONCE DAILY
     Route: 065
     Dates: start: 20200323
  4. MIRTAZAPINE [Suspect]
     Active Substance: MIRTAZAPINE
     Dosage: DOSE INCREASED UP TO 45 MG/ CONTINUED ON 45 MG AXIT
     Route: 065
  5. MIRTAZAPINE [Suspect]
     Active Substance: MIRTAZAPINE
     Dosage: AXIT 7.5 MG
     Route: 065
  6. MIRTAZAPINE [Suspect]
     Active Substance: MIRTAZAPINE
     Dosage: UNK
     Route: 065
     Dates: start: 20200604, end: 20200619
  7. LEXAPRO [Suspect]
     Active Substance: ESCITALOPRAM OXALATE
     Indication: Product used for unknown indication
     Dosage: TOOK AN INCREASING DOSE OF 1 DROP INCREASING TO 6 DROPS
     Route: 065
     Dates: start: 20191027, end: 20191108
  8. RISPERIDONE [Suspect]
     Active Substance: RISPERIDONE
     Indication: Product used for unknown indication
     Dosage: 0.5 MG EACH MORNING
     Route: 048
     Dates: start: 201912, end: 20191230
  9. TEMAZEPAM [Suspect]
     Active Substance: TEMAZEPAM
     Indication: Product used for unknown indication
     Dosage: 10 MG X 0.5 TABLET AT NIGHT PRN
     Route: 065
     Dates: start: 20191029, end: 20191129
  10. VALIUM [Suspect]
     Active Substance: DIAZEPAM
     Indication: Product used for unknown indication
     Dosage: 2 MG TO 5 MG AT NIGHT TIME
     Route: 065
     Dates: start: 20191004, end: 20191028

REACTIONS (20)
  - Abnormal behaviour [Recovered/Resolved]
  - Hyponatraemia [Recovered/Resolved]
  - Irritability [Recovering/Resolving]
  - Hyperthyroidism [Not Recovered/Not Resolved]
  - Oedema [Recovered/Resolved]
  - Patient elopement [Recovered/Resolved]
  - Taste disorder [Recovered/Resolved]
  - Autoscopy [Recovered/Resolved]
  - Blood iron decreased [Not Recovered/Not Resolved]
  - Fat tissue increased [Not Recovered/Not Resolved]
  - Agitation [Recovering/Resolving]
  - Confusional state [Recovered/Resolved]
  - Dry mouth [Recovered/Resolved]
  - Insomnia [Recovered/Resolved]
  - Restlessness [Recovering/Resolving]
  - Weight decreased [Recovered/Resolved]
  - Weight increased [Not Recovered/Not Resolved]
  - Constipation [Recovered/Resolved]
  - Hypertension [Recovered/Resolved]
  - Agitation [Recovering/Resolving]
